FAERS Safety Report 24225762 (Version 1)
Quarter: 2024Q3

REPORT INFORMATION
  Report Type: Spontaneous
  Country: CA (occurrence: CA)
  Receive Date: 20240820
  Receipt Date: 20240820
  Transmission Date: 20241017
  Serious: Yes (Death, Other)
  Sender: AMYLYX PHARMACEUTICALS
  Company Number: CA-AMX-008133

PATIENT
  Age: 64 Year
  Sex: Male

DRUGS (1)
  1. SODIUM PHENYLBUTYRATE\TAURURSODIOL [Suspect]
     Active Substance: SODIUM PHENYLBUTYRATE\TAURURSODIOL
     Indication: Amyotrophic lateral sclerosis
     Dosage: 1 SACHET ONCE DAILY FOR 3 WEEKS THEN 1 SACHET TWICE DAILY
     Route: 048

REACTIONS (2)
  - Respiratory failure [Fatal]
  - Drug ineffective [Fatal]
